FAERS Safety Report 12245601 (Version 1)
Quarter: 2016Q2

REPORT INFORMATION
  Report Type: Spontaneous
  Country: US (occurrence: US)
  Receive Date: 20160407
  Receipt Date: 20160407
  Transmission Date: 20160815
  Serious: No
  Sender: FDA-Public Use
  Company Number: US-ACTAVIS-2015-25377

PATIENT
  Age: 90 Year
  Sex: Female

DRUGS (1)
  1. HYDROCORTISONE (AMALLC) [Suspect]
     Active Substance: HYDROCORTISONE
     Indication: ECZEMA
     Dosage: UNK, BID
     Route: 061
     Dates: start: 20150902

REACTIONS (1)
  - Eye pruritus [Not Recovered/Not Resolved]

NARRATIVE: CASE EVENT DATE: 20150904
